FAERS Safety Report 7777848-9 (Version None)
Quarter: 2011Q3

REPORT INFORMATION
  Report Type: 
  Country: None (occurrence: None)
  Receive Date: 20110926
  Receipt Date: 20110915
  Transmission Date: 20111222
  Serious: No
  Sender: FDA-Public Use
  Company Number: US-BIOGENIDEC-2011BI035753

PATIENT
  Age: 59 Year
  Sex: Female

DRUGS (1)
  1. TYSABRI [Suspect]
     Indication: MULTIPLE SCLEROSIS
     Route: 042
     Dates: start: 20081107

REACTIONS (9)
  - TREMOR [None]
  - MEMORY IMPAIRMENT [None]
  - DECREASED INTEREST [None]
  - DEPRESSED MOOD [None]
  - MENTAL IMPAIRMENT [None]
  - FATIGUE [None]
  - STRESS [None]
  - BURNOUT SYNDROME [None]
  - TEMPERATURE INTOLERANCE [None]
